FAERS Safety Report 7006414-8 (Version None)
Quarter: 2010Q3

REPORT INFORMATION
  Report Type: 
  Country: None (occurrence: None)
  Receive Date: 20100921
  Receipt Date: 20100913
  Transmission Date: 20110219
  Serious: Yes (Other)
  Sender: FDA-Public Use
  Company Number: BR-AMGEN-QUU438930

PATIENT
  Age: 29 Year
  Sex: Male
  Weight: 134 kg

DRUGS (2)
  1. ENBREL [Suspect]
     Indication: PSORIATIC ARTHROPATHY
     Route: 058
     Dates: start: 20070830, end: 20100730
  2. NEXIUM [Concomitant]

REACTIONS (1)
  - GASTRIC NEOPLASM [None]
